FAERS Safety Report 5557856-9 (Version None)
Quarter: 2007Q4

REPORT INFORMATION
  Report Type: 
  Country: None (occurrence: None)
  Receive Date: 20071214
  Receipt Date: 20071204
  Transmission Date: 20080405
  Serious: Yes (Death)
  Sender: FDA-Public Use
  Company Number: JP-WYE-H01560607

PATIENT
  Sex: Male
  Weight: 45 kg

DRUGS (16)
  1. MYLOTARG [Suspect]
     Indication: ACUTE MYELOID LEUKAEMIA
     Route: 041
     Dates: start: 20070122, end: 20070122
  2. HARNAL [Concomitant]
     Route: 048
     Dates: start: 20061209, end: 20070131
  3. ISCOTIN [Concomitant]
     Indication: PROPHYLAXIS
     Route: 048
     Dates: start: 20061207, end: 20070131
  4. PYDOXAL [Concomitant]
     Indication: PROPHYLAXIS
     Route: 048
     Dates: start: 20061207, end: 20070131
  5. CIPROFLOXACIN [Concomitant]
     Route: 048
     Dates: start: 20070124, end: 20070131
  6. DIFLUCAN [Concomitant]
     Indication: PROPHYLAXIS
     Route: 048
     Dates: start: 20070124, end: 20070129
  7. VFEND [Concomitant]
     Route: 041
     Dates: start: 20070130, end: 20070131
  8. FIRSTCIN [Concomitant]
     Route: 041
     Dates: start: 20070123, end: 20070129
  9. RABEPRAZOLE SODIUM [Concomitant]
     Indication: PROPHYLAXIS
     Route: 048
     Dates: start: 20070124, end: 20070131
  10. TIENAM [Concomitant]
     Route: 041
     Dates: start: 20070129, end: 20070131
  11. AMIKACIN SULFATE [Concomitant]
     Route: 041
     Dates: start: 20070129, end: 20070131
  12. VENOGLOBULIN [Concomitant]
     Route: 041
     Dates: start: 20070129, end: 20070131
  13. VANCOMYCIN HYDROCHLORIDE [Concomitant]
     Route: 041
     Dates: start: 20070130, end: 20070131
  14. SOLU-MEDROL [Concomitant]
     Route: 041
     Dates: start: 20070129, end: 20070131
  15. HUMALOG [Concomitant]
     Dosage: NOT SPECIFIED
     Route: 058
     Dates: start: 20061129, end: 20070131
  16. FRANDOL [Concomitant]
     Dosage: 1 DF/DAY
     Route: 048
     Dates: start: 20061129, end: 20070131

REACTIONS (5)
  - DISSEMINATED INTRAVASCULAR COAGULATION [None]
  - LIVER DISORDER [None]
  - NEUTROPHIL COUNT DECREASED [None]
  - SEPSIS [None]
  - SEPTIC SHOCK [None]
